FAERS Safety Report 21358511 (Version 2)
Quarter: 2022Q3

REPORT INFORMATION
  Report Type: Spontaneous
  Country: US (occurrence: US)
  Receive Date: 20220921
  Receipt Date: 20220928
  Transmission Date: 20221026
  Serious: Yes (Disabling, Other)
  Sender: FDA-Public Use
  Company Number: US-REGENERON PHARMACEUTICALS, INC.-2022-113395

PATIENT
  Sex: Female

DRUGS (1)
  1. EYLEA [Suspect]
     Active Substance: AFLIBERCEPT
     Indication: Macular degeneration
     Dosage: 2 MG, Q6W, IN THE LEFT EYE
     Dates: start: 20211108

REACTIONS (7)
  - Blindness unilateral [Unknown]
  - Urinary tract infection [Unknown]
  - Thirst decreased [Unknown]
  - Decreased appetite [Unknown]
  - Dehydration [Unknown]
  - Feeling abnormal [Unknown]
  - Vitreous floaters [Recovered/Resolved]

NARRATIVE: CASE EVENT DATE: 20220801
